FAERS Safety Report 4645030-X (Version None)
Quarter: 2005Q2

REPORT INFORMATION
  Report Type: 
  Country: None (occurrence: None)
  Receive Date: 20050426
  Receipt Date: 20050303
  Transmission Date: 20051028
  Serious: Yes (Hospitalization)
  Sender: FDA-Public Use
  Company Number: JP-ROCHE-398038

PATIENT
  Age: 23 Year
  Sex: Male

DRUGS (3)
  1. TAMIFLU [Suspect]
     Dosage: TAKEN IN THE EVENING
     Route: 048
     Dates: start: 20050213, end: 20050213
  2. TAMIFLU [Suspect]
     Route: 048
     Dates: start: 20050212, end: 20050212
  3. CALONAL [Concomitant]
     Indication: DRUG USE FOR UNKNOWN INDICATION
     Route: 048
     Dates: start: 20050212, end: 20050213

REACTIONS (1)
  - LOSS OF CONSCIOUSNESS [None]
